FAERS Safety Report 16994751 (Version 2)
Quarter: 2019Q4

REPORT INFORMATION
  Report Type: Report from Study
  Country: CA (occurrence: CA)
  Receive Date: 20191105
  Receipt Date: 20191120
  Transmission Date: 20200122
  Serious: Yes (Other)
  Sender: FDA-Public Use
  Company Number: CA-PFIZER INC-2019474110

PATIENT
  Age: 63 Year
  Sex: Female

DRUGS (15)
  1. COSENTYX [Suspect]
     Active Substance: SECUKINUMAB
     Dosage: 300 MG, MONTHLY
     Route: 058
  2. COSENTYX [Suspect]
     Active Substance: SECUKINUMAB
     Indication: PSORIASIS
     Dosage: 300 MG, WEEKLY
     Route: 058
  3. COSENTYX [Suspect]
     Active Substance: SECUKINUMAB
     Indication: PSORIASIS
     Dosage: 300 MG, MONTHLY
     Route: 058
  4. COSENTYX [Suspect]
     Active Substance: SECUKINUMAB
     Dosage: 300 MG, WEEKLY
     Route: 058
  5. PERMETHRIN. [Concomitant]
     Active Substance: PERMETHRIN
     Route: 065
  6. COSENTYX [Suspect]
     Active Substance: SECUKINUMAB
     Dosage: 300 MG, MONTHLY
     Route: 058
  7. ACITRETIN. [Concomitant]
     Active Substance: ACITRETIN
     Route: 065
  8. COSENTYX [Suspect]
     Active Substance: SECUKINUMAB
     Dosage: 300 MG, MONTHLY
     Route: 058
  9. COSENTYX [Suspect]
     Active Substance: SECUKINUMAB
     Dosage: 300 MG, MONTHLY
     Route: 058
  10. STELARA [Concomitant]
     Active Substance: USTEKINUMAB
     Route: 065
  11. COSENTYX [Suspect]
     Active Substance: SECUKINUMAB
     Dosage: 300 MG, MONTHLY
     Route: 058
  12. METHOTREXATE SODIUM. [Suspect]
     Active Substance: METHOTREXATE SODIUM
     Route: 065
  13. COSENTYX [Suspect]
     Active Substance: SECUKINUMAB
     Dosage: 300 MG, WEEKLY
     Route: 058
  14. BETAMETHASONE DIPROPIONATE/CALCIPOTRIOL [Concomitant]
     Route: 065
  15. BETAMETHASONE VALERATE. [Concomitant]
     Active Substance: BETAMETHASONE VALERATE
     Route: 065

REACTIONS (13)
  - Skin exfoliation [Not Recovered/Not Resolved]
  - Tooth abscess [Not Recovered/Not Resolved]
  - Body temperature decreased [Not Recovered/Not Resolved]
  - Burning sensation [Not Recovered/Not Resolved]
  - Infection [Not Recovered/Not Resolved]
  - Psoriasis [Not Recovered/Not Resolved]
  - Cellulitis [Not Recovered/Not Resolved]
  - Pain [Not Recovered/Not Resolved]
  - Pruritus [Not Recovered/Not Resolved]
  - Drug ineffective [Not Recovered/Not Resolved]
  - Dry skin [Not Recovered/Not Resolved]
  - Wound [Not Recovered/Not Resolved]
  - Gait inability [Not Recovered/Not Resolved]
